FAERS Safety Report 5563429-4 (Version None)
Quarter: 2007Q4

REPORT INFORMATION
  Report Type: 
  Country: None (occurrence: None)
  Receive Date: 20071217
  Receipt Date: 20070611
  Transmission Date: 20080405
  Serious: No
  Sender: FDA-Public Use
  Company Number: US-ASTRAZENECA-2007UW12080

PATIENT
  Age: 23075 Day
  Sex: Female
  Weight: 72.6 kg

DRUGS (1)
  1. CRESTOR [Suspect]
     Indication: BLOOD CHOLESTEROL INCREASED
     Route: 048
     Dates: start: 20070511

REACTIONS (8)
  - CHEST PAIN [None]
  - CONSTIPATION [None]
  - COUGH [None]
  - FAECES DISCOLOURED [None]
  - FAECES HARD [None]
  - PARAESTHESIA [None]
  - SOMNOLENCE [None]
  - WHEEZING [None]
